FAERS Safety Report 5108162-8 (Version None)
Quarter: 2006Q3

REPORT INFORMATION
  Report Type: 
  Country: None (occurrence: None)
  Receive Date: 20060919
  Receipt Date: 20060301
  Transmission Date: 20061208
  Serious: Yes (Other)
  Sender: FDA-Public Use
  Company Number: US-ROCHE-439045

PATIENT
  Age: 28 Year
  Sex: Female
  Weight: 51.3 kg

DRUGS (9)
  1. ACCUTANE [Suspect]
     Indication: ACNE
     Route: 048
     Dates: start: 19890817, end: 19890917
  2. ACCUTANE [Suspect]
     Route: 048
     Dates: start: 19890918, end: 19891023
  3. ACCUTANE [Suspect]
     Route: 048
     Dates: start: 19891221
  4. ACCUTANE [Suspect]
     Route: 048
     Dates: start: 19900608, end: 19900708
  5. ACCUTANE [Suspect]
     Dosage: 20 MG DAILY ALTERNATING 40 MG DAILY.
     Route: 048
     Dates: start: 19900709, end: 19900809
  6. ACCUTANE [Suspect]
     Route: 048
     Dates: start: 19900810
  7. ACCUTANE [Suspect]
     Route: 048
     Dates: start: 19920417, end: 19920615
  8. ACCUTANE [Suspect]
     Route: 048
     Dates: start: 19920616
  9. BIRTH CONTROL PILLS NOS [Suspect]
     Route: 048

REACTIONS (8)
  - ANXIETY [None]
  - ARTHRITIS [None]
  - BLOOD CREATINE PHOSPHOKINASE INCREASED [None]
  - COLITIS ISCHAEMIC [None]
  - CROHN'S DISEASE [None]
  - ECZEMA [None]
  - INFLAMMATORY BOWEL DISEASE [None]
  - MYALGIA [None]
